FAERS Safety Report 5060104-X (Version None)
Quarter: 2006Q3

REPORT INFORMATION
  Report Type: 
  Country: None (occurrence: None)
  Receive Date: 20060724
  Receipt Date: 20060710
  Transmission Date: 20061208
  Serious: Yes (Death, Hospitalization)
  Sender: FDA-Public Use
  Company Number: US-AVENTIS-200617154GDDC

PATIENT
  Age: 60 Year
  Sex: Male
  Weight: 91 kg

DRUGS (3)
  1. TAXOTERE [Suspect]
     Route: 042
     Dates: start: 20060626, end: 20060626
  2. ENOXAPARIN [Suspect]
     Route: 058
     Dates: end: 20060703
  3. IRINOTECAN [Suspect]
     Route: 042
     Dates: start: 20060626, end: 20060626

REACTIONS (9)
  - ABDOMINAL DISTENSION [None]
  - HYPOTENSION [None]
  - NEUTROPHIL COUNT DECREASED [None]
  - REFUSAL OF TREATMENT BY PATIENT [None]
  - RENAL FAILURE ACUTE [None]
  - SEPSIS [None]
  - SYNCOPE [None]
  - URINE OUTPUT DECREASED [None]
  - WHITE BLOOD CELL COUNT DECREASED [None]
